FAERS Safety Report 18793908 (Version 1)
Quarter: 2021Q1

REPORT INFORMATION
  Report Type: Spontaneous
  Country: US (occurrence: US)
  Receive Date: 20210127
  Receipt Date: 20210127
  Transmission Date: 20210419
  Serious: Yes (Other)
  Sender: FDA-Public Use
  Company Number: None

PATIENT
  Age: 41 Year
  Sex: Female
  Weight: 86.85 kg

DRUGS (4)
  1. IC METHYLPHENIDATE ER 54 MG TAB [Suspect]
     Active Substance: METHYLPHENIDATE
     Indication: ATTENTION DEFICIT HYPERACTIVITY DISORDER
     Dosage: ?          QUANTITY:1 TABLET(S);?
     Route: 048
     Dates: start: 20201125, end: 20210127
  2. IRON [Concomitant]
     Active Substance: IRON
  3. HEADACHE MEDICINE [Concomitant]
  4. MULTIPLE VITAMIN [Concomitant]
     Active Substance: VITAMINS

REACTIONS (3)
  - Drug ineffective [None]
  - Headache [None]
  - Product substitution issue [None]

NARRATIVE: CASE EVENT DATE: 20210101
